FAERS Safety Report 10257959 (Version 1)
Quarter: 2014Q2

REPORT INFORMATION
  Report Type: Spontaneous
  Country: US (occurrence: US)
  Receive Date: 20140625
  Receipt Date: 20140625
  Transmission Date: 20141212
  Serious: No
  Sender: FDA-Public Use
  Company Number: US-009507513-1406USA008372

PATIENT
  Age: 18 Year
  Sex: Female
  Weight: 52.61 kg

DRUGS (2)
  1. NUVARING [Suspect]
     Indication: MENSTRUATION NORMAL
     Dosage: 4 WEEKS IN WITH NO BREAK
     Route: 067
     Dates: start: 20140520
  2. IRON (UNSPECIFIED) [Concomitant]

REACTIONS (3)
  - Amenorrhoea [Not Recovered/Not Resolved]
  - Drug prescribing error [Unknown]
  - Incorrect drug administration duration [Unknown]
